FAERS Safety Report 5971412-X (Version None)
Quarter: 2008Q4

REPORT INFORMATION
  Report Type: 
  Country: None (occurrence: None)
  Receive Date: 20081130
  Receipt Date: 20081124
  Transmission Date: 20090506
  Serious: Yes (Other)
  Sender: FDA-Public Use
  Company Number: US-PFIZER INC-2008027277

PATIENT
  Sex: Female
  Weight: 56.7 kg

DRUGS (2)
  1. XALATAN [Suspect]
     Indication: GLAUCOMA
  2. ALPHAGAN [Concomitant]

REACTIONS (9)
  - DRY SKIN [None]
  - EYE HAEMORRHAGE [None]
  - EYE LASER SURGERY [None]
  - EYELID DISORDER [None]
  - EYELID EXFOLIATION [None]
  - EYELIDS PRURITUS [None]
  - HEADACHE [None]
  - HYPERSENSITIVITY [None]
  - OCULAR HYPERAEMIA [None]
